FAERS Safety Report 4360246-8 (Version None)
Quarter: 2004Q2

REPORT INFORMATION
  Report Type: 
  Country: None (occurrence: None)
  Receive Date: 20040519
  Receipt Date: 20040302
  Transmission Date: 20050107
  Serious: Yes (Hospitalization)
  Sender: FDA-Public Use
  Company Number: DE-JNJFOC-20031204590

PATIENT
  Sex: Male
  Weight: 75 kg

DRUGS (4)
  1. RISPERDAL [Suspect]
     Route: 030
     Dates: start: 20021209, end: 20030509
  2. RISPERDAL [Suspect]
     Route: 030
     Dates: start: 20021209, end: 20030509
  3. RISPERDAL [Concomitant]
     Route: 049
  4. RISPERDAL [Concomitant]
     Route: 049

REACTIONS (1)
  - THROMBOSIS [None]
